FAERS Safety Report 9445411 (Version 2)
Quarter: 2013Q4

REPORT INFORMATION
  Report Type: Spontaneous
  Country: US (occurrence: US)
  Receive Date: 20130807
  Receipt Date: 20131104
  Transmission Date: 20140711
  Serious: No
  Sender: FDA-Public Use
  Company Number: US-PFIZER INC-2013229678

PATIENT
  Age: 47 Year
  Sex: Female
  Weight: 49.43 kg

DRUGS (4)
  1. LYRICA [Suspect]
     Indication: FIBROMYALGIA
     Dosage: 75 MG, 4X/DAY
     Route: 048
     Dates: start: 2001
  2. LYRICA [Suspect]
     Dosage: 150 MG, 3X/DAY
     Route: 048
  3. LYRICA [Suspect]
     Dosage: 75 MG, 2X/DAY
     Route: 048
  4. LYRICA [Suspect]
     Dosage: UNK
     Route: 048

REACTIONS (6)
  - Weight increased [Unknown]
  - Pain [Unknown]
  - Pain of skin [Unknown]
  - Skin burning sensation [Unknown]
  - Neuralgia [Unknown]
  - Drug ineffective [Unknown]
